FAERS Safety Report 11246740 (Version 1)
Quarter: 2015Q3

REPORT INFORMATION
  Report Type: Spontaneous
  Country: DE (occurrence: DE)
  Receive Date: 20150708
  Receipt Date: 20150708
  Transmission Date: 20151125
  Serious: Yes (Death, Hospitalization, Other)
  Sender: FDA-Public Use
  Company Number: PHHY2013DE068939

PATIENT
  Sex: Male
  Weight: 78 kg

DRUGS (8)
  1. EXJADE [Suspect]
     Active Substance: DEFERASIROX
     Dosage: 500 MG, QD
     Route: 065
     Dates: start: 20130625, end: 20130802
  2. VIDAZA [Concomitant]
     Active Substance: AZACITIDINE
     Indication: ACUTE MYELOID LEUKAEMIA
     Dosage: DAY 1 TO 9 OF EVERY MONTH
     Route: 065
  3. EXJADE [Suspect]
     Active Substance: DEFERASIROX
     Dosage: 500 MG, QD
     Route: 065
     Dates: start: 20120502, end: 20120508
  4. EXJADE [Suspect]
     Active Substance: DEFERASIROX
     Dosage: 500 MG, QD
     Route: 065
     Dates: start: 20121022, end: 20121122
  5. EXJADE [Suspect]
     Active Substance: DEFERASIROX
     Indication: HAEMOCHROMATOSIS
     Dosage: 500 MG
     Route: 065
     Dates: start: 20120426
  6. EXJADE [Suspect]
     Active Substance: DEFERASIROX
     Dosage: 500 MG, TID
     Route: 065
  7. EXJADE [Suspect]
     Active Substance: DEFERASIROX
     Dosage: 1000 MG, QD
     Route: 065
     Dates: start: 20120509, end: 20120618
  8. EXJADE [Suspect]
     Active Substance: DEFERASIROX
     Dosage: 500 MG, QD
     Route: 065
     Dates: start: 20130302, end: 20130412

REACTIONS (20)
  - Full blood count decreased [Not Recovered/Not Resolved]
  - White blood cell count decreased [Unknown]
  - Myelodysplastic syndrome transformation [Unknown]
  - Epistaxis [Unknown]
  - Bacterial infection [Unknown]
  - Haemoglobin decreased [Not Recovered/Not Resolved]
  - Pyrexia [Unknown]
  - Pulmonary mycosis [Unknown]
  - Vomiting [Unknown]
  - Anaphylactic reaction [Unknown]
  - Asthenia [Unknown]
  - Death [Fatal]
  - Platelet count decreased [Unknown]
  - Acute myeloid leukaemia [Unknown]
  - Pruritus [Unknown]
  - General physical condition abnormal [Unknown]
  - Abdominal pain upper [Unknown]
  - Urinary tract infection [Unknown]
  - Dyspepsia [Unknown]
  - Off label use [Unknown]

NARRATIVE: CASE EVENT DATE: 20130412
